FAERS Safety Report 9559888 (Version 1)
Quarter: 2013Q3

REPORT INFORMATION
  Report Type: Spontaneous
  Country: US (occurrence: None)
  Receive Date: 20130821
  Receipt Date: 20130821
  Transmission Date: 20140515
  Serious: No
  Sender: FDA-Public Use
  Company Number: 1000044799

PATIENT
  Age: 87 Year
  Sex: Female

DRUGS (14)
  1. TUDORZA PRESSAIR (ACLIDINIUM BROMIDE) (400 MICROGRAM, POWDER) [Suspect]
     Indication: CHRONIC OBSTRUCTIVE PULMONARY DISEASE
     Dosage: 800 MCG (400 MCG, 2 IN 1 D), RESPIRATORY (INHALATION)
     Dates: start: 201303
  2. EVISTA (RALOXIFENE HYDROCHLORIDE) (RALOXIFENE HYDROCHLORIDE) [Concomitant]
  3. LORTAB (ACETAMINOPHEN, HYDROCODONE) (ACETAMINOPHEN, HYDROCODONE) [Concomitant]
  4. PROZAC (FLUOXETINE HYDROCHLORIDE) (FLUOXETINE HYDROCHLORIDE) [Concomitant]
  5. THEOPHYLLINE (THEOPHYLLINE) [Concomitant]
  6. SYNTHROID (LEVOTHYROXINE SODIUM) (LEVOTHYROXINE SODIUM) [Concomitant]
  7. PRAVACHOL (PRAVASTATIN SODIUM) (PRAVASTATIN SODIUM) [Concomitant]
  8. LYRICA (PREGABALIN) (PREGABALIN) [Concomitant]
  9. DETROL LA (TOLTERODINE L-TARTRATE) (TOLTERODINE L-TARTRATE) [Concomitant]
  10. MAGNESIUM CITRATE (MAGNESIUM CITRATE) [Concomitant]
  11. ASPIRIN (ACETYLSALICYLIC ACID) (ACETYLSALICYLIC ACID) [Concomitant]
  12. MVI (VITAMINS NOS) (VITAMINS NOS) [Concomitant]
  13. FISH OIL (FISH OIL) [Concomitant]
  14. MIRALAX (POLYETHYLENE GLYCOL) (POLYETHYLENE GLYCOL) [Concomitant]

REACTIONS (1)
  - Oral discomfort [None]
